FAERS Safety Report 9849612 (Version 2)
Quarter: 2014Q1

REPORT INFORMATION
  Report Type: Report from Study
  Country: US (occurrence: US)
  Receive Date: 20140128
  Receipt Date: 20140203
  Transmission Date: 20141002
  Serious: Yes (Hospitalization)
  Sender: FDA-Public Use
  Company Number: US-009507513-1401USA010314

PATIENT
  Age: 55 Year
  Sex: Male
  Weight: 79.3 kg

DRUGS (3)
  1. VORINOSTAT [Suspect]
     Indication: ACUTE MYELOID LEUKAEMIA
     Dosage: 500 MG,TID ON DAYS 1-3
     Route: 048
     Dates: start: 20131221
  2. CYTARABINE [Suspect]
     Indication: ACUTE MYELOID LEUKAEMIA
     Dosage: 1500 MG/M2/DAY, DAYS 4-7
     Route: 042
     Dates: start: 20131224
  3. IDARUBICIN [Suspect]
     Indication: ACUTE MYELOID LEUKAEMIA
     Dosage: 12 MG/M2/DAY, OVER 15 MIN ON DAYS 4-6
     Route: 042
     Dates: start: 20131224

REACTIONS (1)
  - Pericardial effusion [Recovered/Resolved]
